FAERS Safety Report 6507670-2 (Version None)
Quarter: 2009Q4

REPORT INFORMATION
  Report Type: 
  Country: None (occurrence: None)
  Receive Date: 20091216
  Receipt Date: 20091209
  Transmission Date: 20100525
  Serious: Yes (Other)
  Sender: FDA-Public Use
  Company Number: E-09-144

PATIENT
  Age: 61 Year
  Sex: Male

DRUGS (6)
  1. PREDNISONE [Suspect]
     Indication: PROSTATE CANCER METASTATIC
     Dosage: B.I.D.
     Dates: start: 20090811, end: 20091012
  2. CHOLESTYRAMINE [Concomitant]
  3. CYANOCOBALAMIN [Concomitant]
  4. ASACO (MESALAZINE) [Concomitant]
  5. COMPAZINE (PROCHLORPERAZINE EDISYALTE) [Concomitant]
  6. LIDOCAINE [Concomitant]

REACTIONS (5)
  - RETINAL DEGENERATION [None]
  - RETINAL TEAR [None]
  - VITREOUS DETACHMENT [None]
  - VITREOUS FLOATERS [None]
  - VITREOUS HAEMORRHAGE [None]
